FAERS Safety Report 10506660 (Version 1)
Quarter: 2014Q4

REPORT INFORMATION
  Report Type: Report from Study
  Country: US (occurrence: US)
  Receive Date: 20141009
  Receipt Date: 20141009
  Transmission Date: 20150528
  Serious: Yes (Hospitalization, Other)
  Sender: FDA-Public Use
  Company Number: US-AMGEN-USASL2014076821

PATIENT
  Age: 65 Year
  Sex: Male

DRUGS (1)
  1. ENBREL [Suspect]
     Active Substance: ETANERCEPT
     Indication: PSORIATIC ARTHROPATHY
     Dosage: 50 MG, QWK
     Route: 058
     Dates: start: 201203

REACTIONS (8)
  - Asthenia [Unknown]
  - Hypoaesthesia [Unknown]
  - Haemorrhage [Unknown]
  - Arthralgia [Unknown]
  - Headache [Unknown]
  - Sleep disorder [Unknown]
  - Pancreatitis [Unknown]
  - Pain in extremity [Unknown]
